FAERS Safety Report 4348499-3 (Version None)
Quarter: 2004Q2

REPORT INFORMATION
  Report Type: 
  Country: None (occurrence: None)
  Receive Date: 20040427
  Receipt Date: 20040331
  Transmission Date: 20050107
  Serious: Yes (Life-Threatening, Hospitalization)
  Sender: FDA-Public Use
  Company Number: PHBS2004JP04364

PATIENT
  Age: 63 Year
  Sex: Male
  Weight: 56 kg

DRUGS (5)
  1. DIOVAN [Suspect]
     Indication: HYPERTENSION
     Dosage: 160 MG/DAY
     Route: 048
     Dates: start: 20040201, end: 20040311
  2. INSULIN HUMAN [Concomitant]
     Indication: DIABETES MELLITUS
     Dosage: 40 IU/DAY
     Dates: start: 19950101
  3. INSULIN HUMAN [Concomitant]
     Dosage: 48 IU/DAY
  4. MEVALOTIN [Concomitant]
     Indication: HYPERLIPIDAEMIA
     Dosage: 10 MG, UNK
     Route: 048
     Dates: end: 20040311
  5. GLYBURIDE [Concomitant]
     Indication: DIABETES MELLITUS
     Dosage: 2.5 MG, UNK
     Route: 048
     Dates: start: 19850101, end: 20040311

REACTIONS (6)
  - BLOOD CREATININE INCREASED [None]
  - BLOOD GLUCOSE INCREASED [None]
  - BLOOD POTASSIUM INCREASED [None]
  - ELECTROCARDIOGRAM T WAVE ABNORMAL [None]
  - HYPERKALAEMIA [None]
  - RENAL IMPAIRMENT [None]
